FAERS Safety Report 5734412-0 (Version None)
Quarter: 2008Q2

REPORT INFORMATION
  Report Type: 
  Country: None (occurrence: None)
  Receive Date: 20080508
  Receipt Date: 20080508
  Transmission Date: 20081010
  Serious: Yes (Life-Threatening, Hospitalization)
  Sender: FDA-Public Use
  Company Number: None

PATIENT
  Age: 56 Year
  Sex: Male
  Weight: 79.8331 kg

DRUGS (1)
  1. LEVOFLOXACIN [Suspect]
     Indication: EPIDIDYMITIS
     Dosage: 500 MG DAILY PO
     Route: 048
     Dates: start: 20080502, end: 20080505

REACTIONS (10)
  - BLOOD BILIRUBIN INCREASED [None]
  - CHROMATURIA [None]
  - COOMBS DIRECT TEST POSITIVE [None]
  - HAEMATOCRIT DECREASED [None]
  - HAEMOGLOBIN DECREASED [None]
  - LETHARGY [None]
  - MACROCYTOSIS [None]
  - RED CELL DISTRIBUTION WIDTH INCREASED [None]
  - SKIN DISCOLOURATION [None]
  - YELLOW SKIN [None]
